FAERS Safety Report 4687650-2 (Version None)
Quarter: 2005Q2

REPORT INFORMATION
  Report Type: 
  Country: None (occurrence: None)
  Receive Date: 20050610
  Receipt Date: 20050602
  Transmission Date: 20051028
  Serious: Yes (Hospitalization)
  Sender: FDA-Public Use
  Company Number: US-BOEHRINGER INGELHEIM PHARMACEUTICALS, INC.-2005-BP-09229BP

PATIENT

DRUGS (3)
  1. SPIRIVA [Suspect]
     Route: 055
  2. ALBUTEROL [Concomitant]
  3. ATROVENT [Concomitant]

REACTIONS (1)
  - DRUG INEFFECTIVE [None]
